FAERS Safety Report 25545311 (Version 2)
Quarter: 2025Q3

REPORT INFORMATION
  Report Type: Spontaneous
  Country: US (occurrence: US)
  Receive Date: 20250711
  Receipt Date: 20250812
  Transmission Date: 20251020
  Serious: Yes (Other)
  Sender: ABBVIE
  Company Number: US-ABBVIE-6363567

PATIENT
  Age: 77 Year
  Sex: Female
  Weight: 79 kg

DRUGS (3)
  1. HUMIRA [Suspect]
     Active Substance: ADALIMUMAB
     Indication: Psoriatic arthropathy
     Dosage: FOR STRENGTH: 40 MILLIGRAM.?DOSE FORM-SOLUTION FOR INJECTION IN PRE-FILLED PEN
     Route: 058
     Dates: start: 2021
  2. SULFASUXIDINE [Suspect]
     Active Substance: SUCCINYLSULFATHIAZOLE
     Indication: Psoriatic arthropathy
     Route: 048
     Dates: start: 202502, end: 202502
  3. METHOTREXATE [Concomitant]
     Active Substance: METHOTREXATE
     Indication: Psoriatic arthropathy
     Route: 065
     Dates: end: 202502

REACTIONS (13)
  - Back pain [Not Recovered/Not Resolved]
  - Product storage error [Not Recovered/Not Resolved]
  - Muscle spasms [Not Recovered/Not Resolved]
  - Musculoskeletal disorder [Not Recovered/Not Resolved]
  - Anaemia [Not Recovered/Not Resolved]
  - Nodule [Not Recovered/Not Resolved]
  - Musculoskeletal stiffness [Not Recovered/Not Resolved]
  - Musculoskeletal stiffness [Not Recovered/Not Resolved]
  - Therapeutic product effect decreased [Not Recovered/Not Resolved]
  - Pain in extremity [Not Recovered/Not Resolved]
  - Joint range of motion decreased [Not Recovered/Not Resolved]
  - Inflammation [Not Recovered/Not Resolved]
  - Urticaria [Recovered/Resolved]

NARRATIVE: CASE EVENT DATE: 20240101
